FAERS Safety Report 20289981 (Version 1)
Quarter: 2022Q1

REPORT INFORMATION
  Report Type: Report from Study
  Country: JP (occurrence: JP)
  Receive Date: 20220104
  Receipt Date: 20220104
  Transmission Date: 20220424
  Serious: Yes (Other)
  Sender: FDA-Public Use
  Company Number: JP-ASTELLAS-2021JP025342

PATIENT

DRUGS (5)
  1. TACROLIMUS [Suspect]
     Active Substance: TACROLIMUS
     Indication: Colitis ulcerative
     Dosage: 0.025 MG/KG BODY WEIGHT/DAY, UNKNOWN FREQ.
     Route: 042
  2. TACROLIMUS [Suspect]
     Active Substance: TACROLIMUS
     Dosage: UNK UNK, UNKNOWN FREQ.
     Route: 042
  3. TACROLIMUS [Suspect]
     Active Substance: TACROLIMUS
     Indication: Colitis ulcerative
     Dosage: UNK UNK, UNKNOWN FREQ.
     Route: 048
  4. TACROLIMUS [Suspect]
     Active Substance: TACROLIMUS
     Dosage: UNK UNK, UNKNOWN FREQ.
     Route: 048
  5. PREDNISOLONE [Concomitant]
     Active Substance: PREDNISOLONE
     Indication: Colitis ulcerative
     Dosage: HIGH DOSE, UNKNOWN FREQ.
     Route: 042

REACTIONS (2)
  - Cytopenia [Unknown]
  - Off label use [Unknown]
